FAERS Safety Report 7310842-0 (Version None)
Quarter: 2011Q1

REPORT INFORMATION
  Report Type: 
  Country: None (occurrence: None)
  Receive Date: 20110214
  Receipt Date: 20110131
  Transmission Date: 20110831
  Serious: Yes (Other)
  Sender: FDA-Public Use
  Company Number: 1000017624

PATIENT
  Age: 69 Year
  Sex: Male
  Weight: 80 kg

DRUGS (5)
  1. MEMANTINE [Suspect]
     Indication: DEMENTIA ALZHEIMER'S TYPE
     Dosage: 10 MG (10 MG,1 IN 1 D), ORAL; 5 MG (5MG,1 IN 1 D), ORAL; 20 MG (20 MG,1 IN 1 D), ORAL
     Route: 048
     Dates: start: 20100512, end: 20101014
  2. MEMANTINE [Suspect]
     Indication: DEMENTIA ALZHEIMER'S TYPE
     Dosage: 10 MG (10 MG,1 IN 1 D), ORAL; 5 MG (5MG,1 IN 1 D), ORAL; 20 MG (20 MG,1 IN 1 D), ORAL
     Route: 048
     Dates: start: 20100415, end: 20100511
  3. MEMANTINE [Suspect]
     Indication: DEMENTIA ALZHEIMER'S TYPE
     Dosage: 10 MG (10 MG,1 IN 1 D), ORAL; 5 MG (5MG,1 IN 1 D), ORAL; 20 MG (20 MG,1 IN 1 D), ORAL
     Route: 048
     Dates: start: 20101015, end: 20101018
  4. CARMEN (LERCANIDIPINE) (LERCANIDIPINE) [Concomitant]
  5. ASS (ACETYLSALICYLIC ACID) (ACETYLSALICYLIC ACID) [Concomitant]

REACTIONS (2)
  - HALLUCINATION [None]
  - DISORIENTATION [None]
